FAERS Safety Report 6471019-4 (Version None)
Quarter: 2009Q4

REPORT INFORMATION
  Report Type: 
  Country: None (occurrence: None)
  Receive Date: 20091203
  Receipt Date: 20080424
  Transmission Date: 20100525
  Serious: Yes (Life-Threatening, Hospitalization)
  Sender: FDA-Public Use
  Company Number: DE-ELI_LILLY_AND_COMPANY-DE200801005306

PATIENT
  Sex: Female

DRUGS (7)
  1. FORTEO [Suspect]
     Indication: OSTEOPOROSIS
     Dosage: UNK, UNKNOWN
     Route: 058
     Dates: start: 20070327, end: 20080109
  2. CALCIUM SANDOZ [Concomitant]
     Dosage: UNK, UNKNOWN
     Route: 065
  3. VITAMIN D [Concomitant]
     Dosage: UNK, UNKNOWN
     Route: 065
  4. MORPHINE [Concomitant]
     Dosage: UNK, UNKNOWN
     Route: 065
  5. CORTISONE [Concomitant]
     Dosage: UNK, UNKNOWN
     Route: 065
  6. METEX [Concomitant]
     Dosage: 10 MG, WEEKLY (1/W)
     Route: 065
     Dates: start: 20070501
  7. PREDNISOLONE [Concomitant]
     Dosage: 20 MG, UNKNOWN
     Route: 065
     Dates: start: 19980101

REACTIONS (2)
  - PNEUMONIA LEGIONELLA [None]
  - SEPTIC SHOCK [None]
